FAERS Safety Report 9523710 (Version 1)
Quarter: 2013Q3

REPORT INFORMATION
  Report Type: Report from Study
  Country: GB (occurrence: GB)
  Receive Date: 20130913
  Receipt Date: 20130913
  Transmission Date: 20140515
  Serious: Yes (Death, Hospitalization)
  Sender: FDA-Public Use
  Company Number: GB-ROCHE-1272900

PATIENT
  Age: 73 Year
  Sex: Male
  Weight: 75.1 kg

DRUGS (4)
  1. BEVACIZUMAB [Suspect]
     Indication: GASTRIC CANCER
     Dosage: MOST RECENT ADMINISTRATION 575MG ON 06/DEC/2012, CYCLE 3
     Route: 042
     Dates: start: 20121025
  2. CAPECITABINE [Suspect]
     Indication: GASTRIC CANCER
     Dosage: MOST RECENT ADMINISTRATION ON 06/DEC/2012, CYCLE 3
     Route: 048
     Dates: start: 20121025
  3. CISPLATIN [Suspect]
     Indication: GASTRIC CANCER
     Dosage: MOST RECENT ADMINISTRATION ON 14/DEC/2012, CYCLE 3
     Route: 048
     Dates: start: 20121025
  4. EPIRUBICIN [Suspect]
     Indication: GASTRIC CANCER
     Dosage: MOST RECENT ADMINISTRATION 100MG ON 06/DEC/2012, CYCLE 3
     Route: 042
     Dates: start: 20121025

REACTIONS (1)
  - Anastomotic leak [Fatal]
